FAERS Safety Report 8826292 (Version 1)
Quarter: 2012Q4

REPORT INFORMATION
  Report Type: 
  Country: US (occurrence: US)
  Receive Date: 20121008
  Receipt Date: 20121008
  Transmission Date: 20130627
  Serious: No
  Sender: FDA-Public Use
  Company Number: US-GLAXOSMITHKLINE-A0987426A

PATIENT
  Age: 57 Year
  Sex: Female
  Weight: 50.5 kg

DRUGS (5)
  1. POTIGA [Suspect]
     Indication: CONVULSION
     Dosage: 150MG Three times per day
     Route: 048
     Dates: start: 20120713
  2. NEURONTIN [Concomitant]
  3. TRILEPTAL [Concomitant]
  4. VIMPAT [Concomitant]
  5. SILODOSIN [Concomitant]

REACTIONS (1)
  - Rash [Recovering/Resolving]
